FAERS Safety Report 16718737 (Version 33)
Quarter: 2020Q4

REPORT INFORMATION
  Report Type: Spontaneous
  Country: BR (occurrence: BR)
  Receive Date: 20190820
  Receipt Date: 20201231
  Transmission Date: 20210113
  Serious: Yes (Death, Hospitalization, Other)
  Sender: FDA-Public Use
  Company Number: BR-IPSEN BIOPHARMACEUTICALS, INC.-2019-13673

PATIENT
  Age: 45 Year
  Sex: Male

DRUGS (5)
  1. SOMATULINE AUTOGEL [Suspect]
     Active Substance: LANREOTIDE ACETATE
     Indication: NEUROENDOCRINE TUMOUR
     Dosage: 120 MG
     Route: 058
     Dates: start: 20190726
  2. GRANULOKINE [Concomitant]
     Active Substance: FILGRASTIM
     Indication: IMMUNE SYSTEM DISORDER
  3. LUTETIUM [Concomitant]
     Indication: CHEMOTHERAPY
     Dates: start: 2019
  4. VIDAZA [Concomitant]
     Active Substance: AZACITIDINE
     Indication: LEUKAEMIA
  5. SOMATULINE AUTOGEL [Suspect]
     Active Substance: LANREOTIDE ACETATE
     Dosage: NOT REPORTED
     Route: 058
     Dates: start: 20200427

REACTIONS (36)
  - White blood cell count decreased [Recovered/Resolved]
  - Bone marrow disorder [Unknown]
  - Lung disorder [Unknown]
  - Tuberculosis [Unknown]
  - Cytomegalovirus infection reactivation [Not Recovered/Not Resolved]
  - Injection site swelling [Recovered/Resolved]
  - Weight increased [Recovered/Resolved]
  - Weight increased [Recovered/Resolved]
  - Application site pain [Recovered/Resolved]
  - Oxygen saturation decreased [Unknown]
  - Neutropenia [Recovered/Resolved]
  - Injection site nodule [Recovered/Resolved]
  - Death [Fatal]
  - Pneumonia cytomegaloviral [Unknown]
  - Leukaemia recurrent [Recovering/Resolving]
  - Swelling [Recovered/Resolved]
  - Lymphatic obstruction [Unknown]
  - Application site pain [Recovered/Resolved]
  - Presyncope [Unknown]
  - Injection site pain [Recovered/Resolved]
  - Dysuria [Recovered/Resolved]
  - Application site haemorrhage [Unknown]
  - Application site nodule [Unknown]
  - Application site discomfort [Recovered/Resolved]
  - Inappropriate schedule of product administration [Unknown]
  - Product dose omission issue [Unknown]
  - Pleural effusion [Recovered/Resolved]
  - Gastrointestinal infection [Recovered/Resolved]
  - Disease progression [Not Recovered/Not Resolved]
  - Abdominal discomfort [Recovered/Resolved]
  - Chest pain [Recovering/Resolving]
  - Anal infection [Recovered/Resolved]
  - Pyrexia [Unknown]
  - Pleural effusion [Recovered/Resolved]
  - Device related infection [Unknown]
  - Injection site discomfort [Recovered/Resolved]

NARRATIVE: CASE EVENT DATE: 2019
